FAERS Safety Report 23206981 (Version 1)
Quarter: 2023Q4

REPORT INFORMATION
  Report Type: Spontaneous
  Country: JP (occurrence: JP)
  Receive Date: 20231120
  Receipt Date: 20231120
  Transmission Date: 20240110
  Serious: Yes (Other)
  Sender: FDA-Public Use
  Company Number: JP-BAUSCH-BL-2023-016956

PATIENT
  Age: 62 Year
  Sex: Female

DRUGS (1)
  1. ISOPROTERENOL [Suspect]
     Active Substance: ISOPROTERENOL
     Indication: Supraventricular tachycardia
     Route: 065

REACTIONS (1)
  - Electrocardiogram J wave increased [Unknown]
